FAERS Safety Report 11541889 (Version 1)
Quarter: 2015Q3

REPORT INFORMATION
  Report Type: Spontaneous
  Country: US (occurrence: US)
  Receive Date: 20150923
  Receipt Date: 20150923
  Transmission Date: 20151125
  Serious: No
  Sender: FDA-Public Use
  Company Number: US-TARO-2015TAR00725

PATIENT
  Age: 2 Year
  Sex: Female
  Weight: 10.91 kg

DRUGS (3)
  1. LORATADINE SYRUP (LORATADINE ORAL SOLUTION USP) 5MG/5ML [Suspect]
     Active Substance: LORATADINE
     Dosage: 6 TSP, ONCE
     Route: 048
     Dates: start: 20150801, end: 20150801
  2. CHILDREN^S VITAMIN [Concomitant]
  3. MEIJER CHILDREN^S CHEWABLE TYLENOL FOR AGES 2-6 [Suspect]
     Active Substance: ACETAMINOPHEN
     Dosage: UNK
     Route: 048
     Dates: start: 2015

REACTIONS (5)
  - Constipation [Not Recovered/Not Resolved]
  - Accidental exposure to product by child [Recovered/Resolved]
  - Product quality issue [Unknown]
  - Abdominal pain [Recovered/Resolved]
  - Nausea [Recovered/Resolved]

NARRATIVE: CASE EVENT DATE: 20150801
